FAERS Safety Report 5116601-1 (Version None)
Quarter: 2006Q3

REPORT INFORMATION
  Report Type: 
  Country: None (occurrence: None)
  Receive Date: 20060920
  Receipt Date: 20060906
  Transmission Date: 20061208
  Serious: Yes (Hospitalization, Other)
  Sender: FDA-Public Use
  Company Number: 2006BH013147

PATIENT
  Age: 4 Year
  Sex: Female
  Weight: 19.5047 kg

DRUGS (4)
  1. GAMMAGARD LIQUID [Suspect]
     Indication: CHRONIC INFLAMMATORY DEMYELINATING POLYRADICULONEUROPATHY
     Dosage: 20.0 GM;3X A WEEK;IV
     Route: 042
     Dates: start: 20060401
  2. IBUPROFEN [Concomitant]
  3. BENADRYL [Concomitant]
  4. MULTIVITAMIN [Concomitant]

REACTIONS (4)
  - ACINETOBACTER INFECTION [None]
  - BLOOD CULTURE POSITIVE [None]
  - MENINGITIS [None]
  - STENOTROPHOMONAS INFECTION [None]
